FAERS Safety Report 7865923-X (Version None)
Quarter: 2011Q4

REPORT INFORMATION
  Report Type: 
  Country: None (occurrence: None)
  Receive Date: 20111028
  Receipt Date: 20110321
  Transmission Date: 20120403
  Serious: No
  Sender: FDA-Public Use
  Company Number: US-GLAXOSMITHKLINE-A0919229A

PATIENT
  Age: 73 Year
  Sex: Male

DRUGS (9)
  1. PLAVIX [Concomitant]
  2. NORVASC [Concomitant]
  3. MONONITRATE (UNKNOWN MEDICATION) [Concomitant]
  4. ADVAIR DISKUS 100/50 [Suspect]
     Indication: COUGH
     Dosage: 1PUFF TWICE PER DAY
     Route: 055
     Dates: start: 20110301
  5. SINGULAIR [Concomitant]
  6. PROAIR HFA [Concomitant]
  7. ALLEGRA [Concomitant]
  8. ASPIRIN [Concomitant]
  9. LOPRESSOR [Concomitant]

REACTIONS (1)
  - DRUG INEFFECTIVE [None]
